FAERS Safety Report 17567016 (Version 1)
Quarter: 2020Q1

REPORT INFORMATION
  Report Type: Spontaneous
  Country: FR (occurrence: FR)
  Receive Date: 20200320
  Receipt Date: 20200320
  Transmission Date: 20200409
  Serious: Yes (Hospitalization, Other)
  Sender: FDA-Public Use
  Company Number: FR-PFIZER INC-K201000377

PATIENT
  Age: 91 Year
  Sex: Female

DRUGS (12)
  1. AUGMENTINE [AMOXICILLIN TRIHYDRATE;CLAVULANATE POTASSIUM] [Suspect]
     Active Substance: AMOXICILLIN\CLAVULANATE POTASSIUM
     Indication: BRONCHITIS
     Dosage: 3 G, 1X/DAY
     Route: 048
     Dates: start: 20100204, end: 20100214
  2. TRIATEC (RAMIPRIL) [Suspect]
     Active Substance: RAMIPRIL
     Indication: INFARCTION
     Dosage: 5 MG, 1X/DAY
     Route: 048
     Dates: start: 20100205, end: 20100223
  3. IMOVANE [Concomitant]
     Active Substance: ZOPICLONE
     Dosage: UNK
  4. PREVISCAN [PENTOXIFYLLINE] [Concomitant]
     Dosage: UNK
  5. KARDEGIC [Concomitant]
     Active Substance: ASPIRIN DL-LYSINE
     Dosage: UNK
  6. DIFFU K [Concomitant]
     Active Substance: POTASSIUM CHLORIDE
     Dosage: UNK
  7. RULID [Suspect]
     Active Substance: ROXITHROMYCIN
     Indication: BRONCHITIS
     Dosage: 150 MG, 2X/DAY
     Route: 048
     Dates: start: 20100204, end: 20100214
  8. CARDENSIEL [Suspect]
     Active Substance: BISOPROLOL FUMARATE
     Indication: INFARCTION
     Dosage: 5 MG, 1X/DAY
     Route: 048
     Dates: start: 20100205, end: 20100301
  9. LASILIX [FUROSEMIDE] [Concomitant]
     Active Substance: FUROSEMIDE
     Dosage: UNK
  10. PREVISCAN [FLUINDIONE] [Concomitant]
     Active Substance: FLUINDIONE
     Dosage: UNK
  11. TRIATEC (RAMIPRIL) [Suspect]
     Active Substance: RAMIPRIL
     Dosage: 2.5 MG, 1X/DAY
     Route: 048
     Dates: start: 20100224, end: 20100226
  12. ADANCOR [Concomitant]
     Active Substance: NICORANDIL
     Dosage: UNK

REACTIONS (10)
  - Acute generalised exanthematous pustulosis [Recovered/Resolved]
  - Oedema peripheral [Recovered/Resolved]
  - Breast oedema [Recovered/Resolved]
  - Skin exfoliation [Recovered/Resolved]
  - Hyperleukocytosis [Recovered/Resolved]
  - Inflammation [Recovered/Resolved]
  - Lip oedema [Recovered/Resolved]
  - Eye oedema [Recovered/Resolved]
  - Impetigo [Recovered/Resolved]
  - Dermatitis exfoliative generalised [Recovered/Resolved]

NARRATIVE: CASE EVENT DATE: 20100217
